FAERS Safety Report 24235488 (Version 1)
Quarter: 2024Q3

REPORT INFORMATION
  Report Type: Spontaneous
  Country: US (occurrence: US)
  Receive Date: 20240821
  Receipt Date: 20240821
  Transmission Date: 20241017
  Serious: No
  Sender: SANOFI AVENTIS
  Company Number: US-SA-SAC20240819000429

PATIENT
  Age: 34 Year
  Sex: Female
  Weight: 90.71 kg

DRUGS (7)
  1. DUPIXENT [Suspect]
     Active Substance: DUPILUMAB
     Indication: Dermatitis atopic
     Dosage: 300 MG, QOW
     Route: 058
     Dates: start: 202403
  2. GLUCOSAMINE + CHONDROITIN WITH MSM [CHONDROITIN SULFATE SODIUM;GLUCOSA [Concomitant]
     Dosage: UNK
  3. VITAMINS NOS [Concomitant]
     Active Substance: VITAMINS
     Dosage: UNK
  4. ZINC [Concomitant]
     Active Substance: ZINC
     Dosage: UNK
  5. FISH OIL [Concomitant]
     Active Substance: FISH OIL
     Dosage: UNK
  6. TACROLIMUS [Concomitant]
     Active Substance: TACROLIMUS
     Dosage: UNK
  7. PENICILLIN G POTASSIUM [Concomitant]
     Active Substance: PENICILLIN G POTASSIUM
     Dosage: UNK

REACTIONS (1)
  - Conjunctivitis [Unknown]

NARRATIVE: CASE EVENT DATE: 20240101
